FAERS Safety Report 14263605 (Version 3)
Quarter: 2021Q3

REPORT INFORMATION
  Report Type: Spontaneous
  Country: BR (occurrence: BR)
  Receive Date: 20171208
  Receipt Date: 20210713
  Transmission Date: 20211014
  Serious: Yes (Hospitalization, Other)
  Sender: FDA-Public Use
  Company Number: BR-DSJP-DSU-2017-157229

PATIENT
  Age: 64 Year
  Sex: Female

DRUGS (1)
  1. OLMETEC 20 MG [Suspect]
     Active Substance: OLMESARTAN MEDOXOMIL
     Indication: PRODUCT USED FOR UNKNOWN INDICATION
     Dosage: UNK
     Route: 065
     Dates: start: 2017

REACTIONS (6)
  - COVID-19 [Unknown]
  - Asthenia [Recovered/Resolved]
  - Cholecystectomy [Recovered/Resolved]
  - Intestinal haemorrhage [Recovered/Resolved]
  - Bacteraemia [Recovered/Resolved]
  - Intestinal perforation [Recovered/Resolved]

NARRATIVE: CASE EVENT DATE: 2018
